FAERS Safety Report 9978333 (Version 1)
Quarter: 2014Q1

REPORT INFORMATION
  Report Type: Report from Study
  Country: US (occurrence: US)
  Receive Date: 20140306
  Receipt Date: 20140306
  Transmission Date: 20141002
  Serious: Yes (Hospitalization)
  Sender: FDA-Public Use
  Company Number: US-ABBVIE-13P-163-1172775-00

PATIENT
  Sex: Female

DRUGS (5)
  1. HUMIRA [Suspect]
     Indication: CROHN^S DISEASE
     Dates: start: 20130828
  2. GABAPENTIN [Concomitant]
     Indication: PAIN
  3. GABAPENTIN [Concomitant]
     Indication: INSOMNIA
  4. PROTONIX [Concomitant]
     Indication: GASTROOESOPHAGEAL REFLUX DISEASE
  5. METOPROLOL [Concomitant]
     Indication: HYPERTENSION
     Dosage: 1 TAB IN AM AND 1 TAB IN PM

REACTIONS (3)
  - Crohn^s disease [Not Recovered/Not Resolved]
  - Malaise [Unknown]
  - Fatigue [Unknown]
